FAERS Safety Report 5447779-8 (Version None)
Quarter: 2007Q3

REPORT INFORMATION
  Report Type: 
  Country: None (occurrence: None)
  Receive Date: 20070910
  Receipt Date: 20070830
  Transmission Date: 20080115
  Serious: Yes (Hospitalization)
  Sender: FDA-Public Use
  Company Number: JP-ASTRAZENECA-2007AP04673

PATIENT
  Age: 28616 Day
  Sex: Female
  Weight: 33 kg

DRUGS (9)
  1. CRESTOR [Suspect]
     Indication: HYPERCHOLESTEROLAEMIA
     Route: 048
     Dates: start: 20070628, end: 20070719
  2. ADALAT [Suspect]
     Indication: HYPERTENSION
     Route: 048
     Dates: start: 20070707, end: 20070719
  3. DIOVAN [Concomitant]
     Indication: HYPERTENSION
     Route: 048
  4. KARIKUROMONE [Concomitant]
     Indication: HYPERTENSION
     Route: 048
  5. TIZANIN [Concomitant]
     Indication: BACK PAIN
     Route: 048
  6. SORELMON SR [Concomitant]
     Indication: BACK PAIN
     Route: 048
  7. LIPITOR [Concomitant]
     Dates: end: 20070501
  8. NOVORAPID MIX [Concomitant]
     Indication: DIABETES MELLITUS
     Route: 058
     Dates: start: 20050301
  9. CEPHADOL [Concomitant]
     Indication: DIZZINESS
     Route: 048

REACTIONS (2)
  - HEPATITIS [None]
  - PANCYTOPENIA [None]
